FAERS Safety Report 21238957 (Version 2)
Quarter: 2023Q2

REPORT INFORMATION
  Report Type: Report from Study
  Country: FR (occurrence: FR)
  Receive Date: 20220822
  Receipt Date: 20230619
  Transmission Date: 20230721
  Serious: Yes (Hospitalization)
  Sender: FDA-Public Use
  Company Number: FR-ADDMEDICA-2022000057

PATIENT
  Age: 3 Decade
  Sex: Female
  Weight: 62 kg

DRUGS (3)
  1. SIKLOS [Suspect]
     Active Substance: HYDROXYUREA
     Indication: Sickle cell anaemia with crisis
     Route: 048
     Dates: start: 201503
  2. SIKLOS [Suspect]
     Active Substance: HYDROXYUREA
     Indication: Sickle cell anaemia with crisis
     Route: 048
  3. SIKLOS [Suspect]
     Active Substance: HYDROXYUREA
     Indication: Sickle cell anaemia with crisis
     Route: 048
     Dates: end: 20220521

REACTIONS (1)
  - Acute myeloid leukaemia [Recovered/Resolved]

NARRATIVE: CASE EVENT DATE: 20220501
